FAERS Safety Report 10462563 (Version 1)
Quarter: 2014Q3

REPORT INFORMATION
  Report Type: Spontaneous
  Country: US (occurrence: US)
  Receive Date: 20140918
  Receipt Date: 20140918
  Transmission Date: 20150326
  Serious: Yes (Other)
  Sender: FDA-Public Use
  Company Number: US-ELI_LILLY_AND_COMPANY-US201409004760

PATIENT
  Sex: Male

DRUGS (2)
  1. NITROBID [Concomitant]
  2. INSULIN HUMAN [Suspect]
     Active Substance: INSULIN HUMAN
     Indication: TYPE 1 DIABETES MELLITUS
     Dosage: 5 U, BID
     Route: 065
     Dates: start: 2012

REACTIONS (2)
  - Chest pain [Recovered/Resolved]
  - Angina pectoris [Recovered/Resolved]
